FAERS Safety Report 4440064-2 (Version None)
Quarter: 2004Q3

REPORT INFORMATION
  Report Type: 
  Country: None (occurrence: None)
  Receive Date: 20040902
  Receipt Date: 20040706
  Transmission Date: 20050211
  Serious: Yes (Life-Threatening)
  Sender: FDA-Public Use
  Company Number: JP-GLAXOSMITHKLINE-B0338385A

PATIENT
  Age: 21 Day
  Sex: Male
  Weight: 0.81 kg

DRUGS (13)
  1. ZOVIRAX [Suspect]
     Indication: HERPES SIMPLEX
     Route: 042
     Dates: start: 20030109, end: 20030305
  2. AMIKACIN SULFATE [Suspect]
     Indication: SEPSIS
     Dosage: 8MG PER DAY
     Route: 042
     Dates: start: 20030116, end: 20030119
  3. MODACIN [Concomitant]
     Indication: SEPSIS
     Route: 042
     Dates: start: 20030112, end: 20030208
  4. VANCOMYCIN [Concomitant]
     Indication: SEPSIS
     Dosage: 7.5MG PER DAY
     Route: 042
     Dates: start: 20030103, end: 20030111
  5. CARBENIN [Concomitant]
     Dosage: 30MG PER DAY
     Route: 042
     Dates: start: 20030108, end: 20030210
  6. FOY [Concomitant]
     Indication: DISSEMINATED INTRAVASCULAR COAGULATION
     Route: 042
     Dates: start: 20030102, end: 20030202
  7. DIFLUCAN [Concomitant]
     Indication: FUNGAL INFECTION
     Route: 042
     Dates: start: 20021231, end: 20030116
  8. VICCILLIN [Concomitant]
     Indication: SEPSIS
     Dosage: 120MG PER DAY
     Route: 042
     Dates: start: 20030116, end: 20030119
  9. FLORID [Concomitant]
     Indication: FUNGAL INFECTION
     Dosage: 10MG PER DAY
     Route: 042
     Dates: start: 20030116, end: 20030125
  10. FIRSTCIN [Concomitant]
     Indication: SEPSIS
     Route: 042
     Dates: start: 20030121, end: 20030305
  11. INDOMETHACIN [Concomitant]
     Indication: PATENT DUCTUS ARTERIOSUS
     Dosage: .08MG PER DAY
     Route: 042
     Dates: start: 20030120, end: 20030125
  12. FUNGIZONE [Concomitant]
     Indication: FUNGAL INFECTION
     Route: 042
     Dates: start: 20030126, end: 20030304
  13. AZACTAM [Concomitant]
     Indication: SEPSIS
     Dosage: 40MG PER DAY
     Route: 042
     Dates: start: 20030209, end: 20030211

REACTIONS (5)
  - BLOOD CREATININE INCREASED [None]
  - CONDITION AGGRAVATED [None]
  - OLIGURIA [None]
  - PANCYTOPENIA [None]
  - RENAL FAILURE [None]
